FAERS Safety Report 6841230-9 (Version None)
Quarter: 2010Q3

REPORT INFORMATION
  Report Type: 
  Country: None (occurrence: None)
  Receive Date: 20100714
  Receipt Date: 20070725
  Transmission Date: 20110219
  Serious: Yes (Other)
  Sender: FDA-Public Use
  Company Number: US-PFIZER INC-2007053225

PATIENT
  Sex: Female
  Weight: 58.181 kg

DRUGS (5)
  1. CHANTIX [Suspect]
     Indication: SMOKING CESSATION THERAPY
     Dates: start: 20070619
  2. CELEXA [Concomitant]
  3. SYNTHROID [Concomitant]
  4. FIORICET [Concomitant]
     Indication: MIGRAINE
     Dosage: AS NEEDED
  5. TRIAMTERENE AND HYDROCHLOROTHIAZID ^HARRIS^ [Concomitant]

REACTIONS (5)
  - ABASIA [None]
  - DYSGEUSIA [None]
  - MALAISE [None]
  - NAUSEA [None]
  - SPEECH DISORDER [None]
